FAERS Safety Report 8010397-1 (Version None)
Quarter: 2011Q4

REPORT INFORMATION
  Report Type: 
  Country: None (occurrence: None)
  Receive Date: 20111123
  Receipt Date: 20110822
  Transmission Date: 20120403
  Serious: No
  Sender: FDA-Public Use
  Company Number: 334279

PATIENT
  Age: 51 Year
  Sex: Male
  Weight: 97.0244 kg

DRUGS (4)
  1. GLIMEPIRIDE [Suspect]
  2. VICTOZA [Suspect]
     Indication: TYPE 2 DIABETES MELLITUS
     Dosage: 0.6 MG, QD, SUBCUTANEOUS
     Route: 058
  3. METFORMIN HCL [Suspect]
  4. LANTUS [Suspect]

REACTIONS (8)
  - THROAT IRRITATION [None]
  - MASTICATION DISORDER [None]
  - ABDOMINAL DISCOMFORT [None]
  - CONSTIPATION [None]
  - WEIGHT DECREASED [None]
  - DYSPEPSIA [None]
  - DECREASED APPETITE [None]
  - ERUCTATION [None]
